FAERS Safety Report 7132871-2 (Version None)
Quarter: 2010Q4

REPORT INFORMATION
  Report Type: 
  Country: None (occurrence: None)
  Receive Date: 20101202
  Receipt Date: 20101110
  Transmission Date: 20110411
  Serious: No
  Sender: FDA-Public Use
  Company Number: US-PFIZER INC-US-WYE-H14269110

PATIENT
  Sex: Female
  Weight: 58.957 kg

DRUGS (5)
  1. PRISTIQ [Suspect]
     Indication: DEPRESSION
     Dosage: 50 MG, 2X/DAY
     Dates: start: 20100101, end: 20100101
  2. PRISTIQ [Suspect]
     Dosage: 50 MG, 1X/DAY
     Dates: start: 20100101
  3. ASPIRIN [Concomitant]
     Dosage: UNK
  4. VITAMINS NOS [Concomitant]
     Dosage: UNK
  5. LISINOPRIL [Concomitant]
     Dosage: UNK

REACTIONS (7)
  - ASTHENIA [None]
  - CONTUSION [None]
  - DEHYDRATION [None]
  - FEELING ABNORMAL [None]
  - HOT FLUSH [None]
  - HYPERHIDROSIS [None]
  - NIGHT SWEATS [None]
